FAERS Safety Report 22148952 (Version 1)
Quarter: 2023Q1

REPORT INFORMATION
  Report Type: Spontaneous
  Country: CN (occurrence: CN)
  Receive Date: 20230328
  Receipt Date: 20230328
  Transmission Date: 20230417
  Serious: Yes (Other)
  Sender: FDA-Public Use
  Company Number: CN-009507513-2303CHN008881

PATIENT
  Age: 76 Year
  Sex: Female
  Weight: 50 kg

DRUGS (1)
  1. INVANZ [Suspect]
     Active Substance: ERTAPENEM SODIUM
     Indication: Chronic obstructive pulmonary disease
     Dosage: 2 G, QD
     Route: 041
     Dates: start: 20230310, end: 20230312

REACTIONS (4)
  - Encephalitis toxic [Unknown]
  - Delirium [Recovered/Resolved]
  - Speech disorder [Unknown]
  - Overdose [Unknown]

NARRATIVE: CASE EVENT DATE: 20230310
